FAERS Safety Report 7385072 (Version 10)
Quarter: 2014Q2

REPORT INFORMATION
  Report Type: Report from Study
  Country: AU (occurrence: AU)
  Receive Date: 20100512
  Receipt Date: 20140609
  Transmission Date: 20141212
  Serious: Yes (Hospitalization)
  Sender: FDA-Public Use
  Company Number: PHHY2010AU28161

PATIENT
  Age: 50 Year
  Sex: Male

DRUGS (21)
  1. CLOZARIL [Suspect]
     Indication: SCHIZOAFFECTIVE DISORDER
     Dosage: 800 MG, 400 MG IN THE MORNING AND AT NIGHT
     Dates: start: 20010801
  2. CLOZARIL [Suspect]
     Dosage: 900 MG, UNK
     Dates: start: 201009
  3. CLOZARIL [Suspect]
     Dosage: 900 MG, UNK
     Route: 048
     Dates: start: 20120807
  4. CLOZARIL [Suspect]
     Dosage: 800 MG, UNK
     Dates: start: 20120816
  5. CLOZARIL [Suspect]
     Dosage: 900 MG, UNK
     Dates: start: 20120816
  6. CLOZARIL [Suspect]
     Dosage: 800 MG, DAILY
     Dates: start: 20120816
  7. HYOSCINE HYDROBROMIDE [Concomitant]
     Indication: SALIVARY HYPERSECRETION
     Dosage: 450 UG, (NOCTE)
     Route: 060
  8. HYOSCINE HYDROBROMIDE [Concomitant]
     Dosage: 300 UG
     Route: 060
  9. CITALOPRAM [Concomitant]
     Indication: DEPRESSION
     Dosage: 60 MG, MANE
     Route: 048
  10. CITALOPRAM [Concomitant]
     Dosage: 40 MG, MANE
     Route: 048
  11. OMEPRAZOLE [Concomitant]
     Indication: GASTROOESOPHAGEAL REFLUX DISEASE
     Dosage: 20 MG, MANE
     Route: 048
  12. QUETIAPINE [Concomitant]
     Indication: SCHIZOAFFECTIVE DISORDER
     Dosage: 600 MG/ DAY
  13. QUETIAPINE [Concomitant]
     Dosage: 400 MG, BID
     Route: 048
     Dates: end: 20130917
  14. QUETIAPINE [Concomitant]
     Dosage: 600 MG
     Route: 048
  15. VALPROATE SODIUM [Concomitant]
     Indication: SCHIZOAFFECTIVE DISORDER
     Dosage: 500 MG, BID
     Route: 048
  16. ROSUVASTATIN [Concomitant]
     Indication: HYPERLIPIDAEMIA
     Dosage: 5 MG, MANE
     Route: 048
  17. FISH OIL OMEGA 3 [Concomitant]
     Dosage: UNK
     Route: 048
  18. DOCUSATE W/SENNA [Concomitant]
     Dosage: 2 DF, BID
     Route: 048
  19. CHOLECALCIFEROL [Concomitant]
     Dosage: 25 UG, UNK
     Route: 048
  20. LACTULOSA [Concomitant]
     Dosage: 20 ML, UNK
     Route: 048
  21. ASENAPINE [Concomitant]
     Dosage: UNK UKN, UNK

REACTIONS (14)
  - Vitamin D decreased [Unknown]
  - Glycosylated haemoglobin increased [Unknown]
  - Blood glucose increased [Unknown]
  - Schizophrenia [Recovering/Resolving]
  - Psychotic disorder [Recovering/Resolving]
  - Delusional perception [Recovering/Resolving]
  - Hallucination, auditory [Unknown]
  - Aggression [Not Recovered/Not Resolved]
  - Paranoia [Recovering/Resolving]
  - Abnormal behaviour [Not Recovered/Not Resolved]
  - Constipation [Recovering/Resolving]
  - Antipsychotic drug level increased [Not Recovered/Not Resolved]
  - Dizziness [Unknown]
  - Salivary hypersecretion [Unknown]
